FAERS Safety Report 17158676 (Version 1)
Quarter: 2019Q4

REPORT INFORMATION
  Report Type: Spontaneous
  Country: US (occurrence: US)
  Receive Date: 20191122
  Receipt Date: 20191122
  Transmission Date: 20200122
  Serious: Yes (Hospitalization)
  Sender: FDA-Public Use
  Company Number: None

PATIENT
  Age: 79 Year
  Sex: Male

DRUGS (14)
  1. SUTENT [Suspect]
     Active Substance: SUNITINIB MALATE
     Indication: RENAL CANCER
     Route: 048
     Dates: start: 20170127
  2. ASPIRIN. [Concomitant]
     Active Substance: ASPIRIN
  3. FOLIC ACID. [Concomitant]
     Active Substance: FOLIC ACID
  4. ZOLPIDEM [Concomitant]
     Active Substance: ZOLPIDEM TARTRATE
  5. NORTHERA [Concomitant]
     Active Substance: DROXIDOPA
  6. GABAPENTIN. [Concomitant]
     Active Substance: GABAPENTIN
  7. GLIPIZIDE. [Concomitant]
     Active Substance: GLIPIZIDE
  8. LEVOTHYROXIN [Concomitant]
     Active Substance: LEVOTHYROXINE
  9. ATORVASTATIN [Concomitant]
     Active Substance: ATORVASTATIN
  10. IRON [Concomitant]
     Active Substance: IRON
  11. OMEGA-3 ACIDS [Concomitant]
     Active Substance: OMEGA-3 FATTY ACIDS
  12. FUROSEMIDE. [Concomitant]
     Active Substance: FUROSEMIDE
  13. INDOMETHACINE [Concomitant]
     Active Substance: INDOMETHACIN
  14. XADAGO [Concomitant]
     Active Substance: SAFINAMIDE MESYLATE

REACTIONS (1)
  - Pneumonia [None]
